FAERS Safety Report 9365921 (Version 1)
Quarter: 2013Q2

REPORT INFORMATION
  Report Type: Spontaneous
  Country: US (occurrence: US)
  Receive Date: 20130625
  Receipt Date: 20130625
  Transmission Date: 20140414
  Serious: No
  Sender: FDA-Public Use
  Company Number: US-PFIZER INC-2013187811

PATIENT
  Age: 47 Year
  Sex: Male

DRUGS (1)
  1. NEURONTIN [Suspect]
     Dosage: 800 MG, 4X/DAY

REACTIONS (1)
  - Nerve injury [Unknown]
